FAERS Safety Report 11862746 (Version 1)
Quarter: 2015Q4

REPORT INFORMATION
  Report Type: Spontaneous
  Country: US (occurrence: None)
  Receive Date: 20151222
  Receipt Date: 20151222
  Transmission Date: 20160305
  Serious: No
  Sender: FDA-Public Use
  Company Number: None

PATIENT
  Age: 69 Year
  Sex: Female
  Weight: 78.47 kg

DRUGS (4)
  1. TRIAMTERENE. [Concomitant]
     Active Substance: TRIAMTERENE
  2. GABAPENTIN 100MGS 3 TIMES A DAY (CHANGED GABAPENTIN 300MG 3 TIMES DAILY MFG. AMNEL [Suspect]
     Active Substance: GABAPENTIN
     Indication: DRUG THERAPY
     Dosage: 100MG?300MG?1 CAPSUL?3DAILY?BY MOUTH
     Route: 048
     Dates: start: 20151111, end: 20151214
  3. METOPROLOL TARTRATE. [Concomitant]
     Active Substance: METOPROLOL TARTRATE
  4. GABAPENTIN 100MGS 3 TIMES A DAY (CHANGED GABAPENTIN 300MG 3 TIMES DAILY MFG. AMNEL [Suspect]
     Active Substance: GABAPENTIN
     Indication: HEADACHE
     Dosage: 100MG?300MG?1 CAPSUL?3DAILY?BY MOUTH
     Route: 048
     Dates: start: 20151111, end: 20151214

REACTIONS (1)
  - Epistaxis [None]
